FAERS Safety Report 9475048 (Version 1)
Quarter: 2013Q3

REPORT INFORMATION
  Report Type: Spontaneous
  Country: US (occurrence: None)
  Receive Date: 20130822
  Receipt Date: 20130822
  Transmission Date: 20140515
  Serious: Yes (Other)
  Sender: FDA-Public Use
  Company Number: None

PATIENT
  Sex: 0

DRUGS (17)
  1. PREDNISONE [Suspect]
     Indication: AUTOIMMUNE DISORDER
     Dosage: STRENGTH:  1 MG?QUANTITY:  4 TABLETS?FREQUENCY:  ONCE DAILY?HOW:  MOUTH?STILL USING/DOES REDUCED?
     Route: 048
     Dates: start: 20130804
  2. PREDNISONE [Suspect]
     Indication: PAIN
     Dosage: STRENGTH:  1 MG?QUANTITY:  4 TABLETS?FREQUENCY:  ONCE DAILY?HOW:  MOUTH?STILL USING/DOES REDUCED?
     Route: 048
     Dates: start: 20130804
  3. PREDNISONE [Suspect]
     Indication: STOMATITIS
     Dosage: STRENGTH:  1 MG?QUANTITY:  4 TABLETS?FREQUENCY:  ONCE DAILY?HOW:  MOUTH?STILL USING/DOES REDUCED?
     Route: 048
     Dates: start: 20130804
  4. OMEPRAZOLE [Concomitant]
  5. LATULOSE [Concomitant]
  6. FLONASE [Concomitant]
  7. K-FIB-CR [Concomitant]
  8. LOSARTAN [Concomitant]
  9. NYSTATIN [Concomitant]
  10. QXYBUTYNIN [Concomitant]
  11. FLUORIDE [Concomitant]
  12. DENTAL GEL [Concomitant]
  13. SDPITIN [Concomitant]
  14. VIT A [Concomitant]
  15. VIT C [Concomitant]
  16. VIT E [Concomitant]
  17. COQ10 [Concomitant]

REACTIONS (3)
  - Blood glucose increased [None]
  - Product quality issue [None]
  - Product substitution issue [None]
